FAERS Safety Report 10609058 (Version 2)
Quarter: 2014Q4

REPORT INFORMATION
  Report Type: Report from Study
  Country: GB (occurrence: GB)
  Receive Date: 20141126
  Receipt Date: 20141205
  Transmission Date: 20150529
  Serious: Yes (Other)
  Sender: FDA-Public Use
  Company Number: GB-AMGEN-GBRNI2014090832

PATIENT
  Age: 25 Year
  Sex: Female
  Weight: 49 kg

DRUGS (2)
  1. ETANERCEPT [Suspect]
     Active Substance: ETANERCEPT
     Indication: JUVENILE IDIOPATHIC ARTHRITIS
     Dosage: 19.2 MG, 2 TIMES/WK
     Route: 065
     Dates: start: 20030228
  2. PIROXICAM. [Concomitant]
     Active Substance: PIROXICAM
     Indication: JUVENILE IDIOPATHIC ARTHRITIS
     Dosage: UNK

REACTIONS (1)
  - Cervix carcinoma stage 0 [Unknown]

NARRATIVE: CASE EVENT DATE: 20130103
